FAERS Safety Report 20936646 (Version 1)
Quarter: 2022Q2

REPORT INFORMATION
  Report Type: Report from Study
  Country: US (occurrence: US)
  Receive Date: 20220609
  Receipt Date: 20220609
  Transmission Date: 20220721
  Serious: Yes (Other)
  Sender: FDA-Public Use
  Company Number: US-BRISTOL-MYERS SQUIBB COMPANY-2022-048386

PATIENT
  Age: 68 Year
  Sex: Male
  Weight: 119 kg

DRUGS (1)
  1. REVLIMID [Suspect]
     Active Substance: LENALIDOMIDE
     Indication: Plasma cell myeloma
     Dosage: 1-14 , 1 WEEK OFF
     Route: 048
     Dates: start: 201905

REACTIONS (2)
  - Ulcerative keratitis [Unknown]
  - Off label use [Unknown]
